FAERS Safety Report 6723274-0 (Version None)
Quarter: 2010Q2

REPORT INFORMATION
  Report Type: 
  Country: None (occurrence: None)
  Receive Date: 20100511
  Receipt Date: 20100425
  Transmission Date: 20101027
  Serious: Yes (Hospitalization)
  Sender: FDA-Public Use
  Company Number: GB-DEXPHARM-20100134

PATIENT
  Age: 73 Year
  Sex: Female

DRUGS (5)
  1. OMEPRAZOLE [Suspect]
     Indication: BARRETT'S OESOPHAGUS
     Dosage: 20-40 MG/DAY
     Route: 048
     Dates: start: 19990101, end: 20080401
  2. PANTOPRAZOLE [Suspect]
     Dosage: 40 MG 1 IN 1 DAY
     Dates: start: 20080601, end: 20080901
  3. ESOMEPRAZOLE MAGNESIUM [Suspect]
     Dosage: 20 MG 1 IN 1 DAY
     Dates: start: 20080401, end: 20080501
  4. PANTOPRAZOLE [Suspect]
     Dosage: 40 MG 1 IN 1 DAY
     Dates: start: 20081101, end: 20081201
  5. FUROSEMIDE [Concomitant]

REACTIONS (15)
  - ABDOMINAL PAIN [None]
  - ARTHRALGIA [None]
  - BALANCE DISORDER [None]
  - CHEST PAIN [None]
  - DIARRHOEA [None]
  - FALL [None]
  - HYPERTENSION [None]
  - HYPOCALCAEMIA [None]
  - HYPOMAGNESAEMIA [None]
  - LETHARGY [None]
  - MUSCLE SPASMS [None]
  - PARAESTHESIA [None]
  - RASH PRURITIC [None]
  - TETANY [None]
  - TREATMENT FAILURE [None]
